FAERS Safety Report 5309408-3 (Version None)
Quarter: 2007Q2

REPORT INFORMATION
  Report Type: 
  Country: None (occurrence: None)
  Receive Date: 20070424
  Receipt Date: 20070424
  Transmission Date: 20071010
  Serious: Yes (Other)
  Sender: FDA-Public Use
  Company Number: None

PATIENT
  Age: 15 Year
  Sex: Female
  Weight: 70 kg

DRUGS (5)
  1. RITUXIMAB NOT AVAILABLE GENENTEC [Suspect]
     Indication: LUPUS NEPHRITIS
     Dates: start: 20040101, end: 20050101
  2. CYTOXAN [Concomitant]
  3. METHOTREXATE [Concomitant]
  4. MYCOPHENALATE [Concomitant]
  5. CORTICOSTEROIDS [Concomitant]

REACTIONS (6)
  - ABSCESS [None]
  - HYPOGAMMAGLOBULINAEMIA [None]
  - IMMUNE SYSTEM DISORDER [None]
  - NEUTROPHIL COUNT INCREASED [None]
  - OSTEONECROSIS [None]
  - PYREXIA [None]
